FAERS Safety Report 21663549 (Version 3)
Quarter: 2023Q1

REPORT INFORMATION
  Report Type: Report from Study
  Country: CO (occurrence: CO)
  Receive Date: 20221130
  Receipt Date: 20230327
  Transmission Date: 20230418
  Serious: Yes (Hospitalization)
  Sender: FDA-Public Use
  Company Number: CO-ABBVIE-4217684

PATIENT
  Age: 56 Year
  Sex: Female
  Weight: 85 kg

DRUGS (4)
  1. HUMIRA [Suspect]
     Active Substance: ADALIMUMAB
     Indication: Product used for unknown indication
     Dosage: FORM STRENGTH 40MG
     Route: 058
     Dates: start: 20161102
  2. HUMIRA [Suspect]
     Active Substance: ADALIMUMAB
  3. MESALAMINE [Concomitant]
     Active Substance: MESALAMINE
     Indication: Irritable bowel syndrome
     Route: 048
     Dates: start: 2013
  4. AZATHIOPRINE [Concomitant]
     Active Substance: AZATHIOPRINE
     Indication: Colitis
     Route: 048
     Dates: start: 2013

REACTIONS (19)
  - Vomiting [Recovering/Resolving]
  - Gastrointestinal inflammation [Not Recovered/Not Resolved]
  - Mobility decreased [Not Recovered/Not Resolved]
  - Limb discomfort [Unknown]
  - Colitis [Recovering/Resolving]
  - Peripheral swelling [Not Recovered/Not Resolved]
  - Irritable bowel syndrome [Recovering/Resolving]
  - Underweight [Not Recovered/Not Resolved]
  - Colonoscopy abnormal [Recovering/Resolving]
  - Colitis [Recovering/Resolving]
  - Haemorrhoids [Recovering/Resolving]
  - Back pain [Not Recovered/Not Resolved]
  - Unevaluable event [Unknown]
  - Dehydration [Recovered/Resolved]
  - Drug effect less than expected [Recovering/Resolving]
  - Dizziness [Not Recovered/Not Resolved]
  - Endoscopy abnormal [Recovering/Resolving]
  - Renal function test abnormal [Unknown]
  - Drug ineffective [Recovering/Resolving]

NARRATIVE: CASE EVENT DATE: 20220801
